FAERS Safety Report 7237340-7 (Version None)
Quarter: 2011Q1

REPORT INFORMATION
  Report Type: 
  Country: None (occurrence: None)
  Receive Date: 20110121
  Receipt Date: 20100409
  Transmission Date: 20110831
  Serious: No
  Sender: FDA-Public Use
  Company Number: A0813166A

PATIENT
  Age: 18 Year
  Sex: Female

DRUGS (6)
  1. TRAMADOL HCL [Concomitant]
  2. CLONAZEPAM [Concomitant]
  3. AZITHROMYCIN [Concomitant]
  4. MEPRON [Suspect]
     Dosage: 1TSP TWICE PER DAY
     Route: 048
  5. SKELAXIN [Concomitant]
  6. LYRICA [Concomitant]

REACTIONS (2)
  - PRODUCT QUALITY ISSUE [None]
  - NAUSEA [None]
